FAERS Safety Report 15661784 (Version 1)
Quarter: 2018Q4

REPORT INFORMATION
  Report Type: Spontaneous
  Country: PT (occurrence: PT)
  Receive Date: 20181127
  Receipt Date: 20181127
  Transmission Date: 20190205
  Serious: Yes (Life-Threatening, Other)
  Sender: FDA-Public Use
  Company Number: PT-SAKK-2018SA157449AA

PATIENT
  Age: 85 Year
  Sex: Female

DRUGS (2)
  1. LOVENOX [Suspect]
     Active Substance: ENOXAPARIN SODIUM
     Indication: ATRIAL FIBRILLATION
     Dosage: ENTRE 25-11-2017 E 04-12-2017, FOI ADMINISTRADO 80 MG 12/12 H. A PARTIR DE 04-12-2018 RETOMA 40 MG.
     Route: 058
     Dates: start: 20171121
  2. WARFARIN [Concomitant]
     Active Substance: WARFARIN
     Indication: ATRIAL FIBRILLATION
     Dosage: UNK
     Route: 048

REACTIONS (5)
  - Hypotension [Unknown]
  - Anuria [Unknown]
  - Haematoma [Unknown]
  - Shock haemorrhagic [Unknown]
  - Renal injury [Unknown]

NARRATIVE: CASE EVENT DATE: 20171103
